FAERS Safety Report 5145010-4 (Version None)
Quarter: 2006Q4

REPORT INFORMATION
  Report Type: 
  Country: None (occurrence: None)
  Receive Date: 20061031
  Receipt Date: 20061017
  Transmission Date: 20070319
  Serious: Yes (Other)
  Sender: FDA-Public Use
  Company Number: 2006-149274-NL

PATIENT
  Age: 33 Year
  Sex: Female
  Weight: 79.4 kg

DRUGS (2)
  1. NUVARING [Suspect]
     Indication: CONTRACEPTION
     Dosage: NI VAGINAL, 3 WKS IN, 1 WK OUT
  2. VITAMINS [Concomitant]

REACTIONS (4)
  - BLOOD CHOLESTEROL INCREASED [None]
  - HEPATIC STEATOSIS [None]
  - HYPERTENSION [None]
  - LIVER DISORDER [None]
